FAERS Safety Report 9247389 (Version 3)
Quarter: 2013Q3

REPORT INFORMATION
  Report Type: Spontaneous
  Country: GB (occurrence: GB)
  Receive Date: 20130423
  Receipt Date: 20130826
  Transmission Date: 20140515
  Serious: Yes (Other)
  Sender: FDA-Public Use
  Company Number: GB-AMGEN-GBRSP2013027644

PATIENT
  Age: 52 Year
  Sex: Female

DRUGS (4)
  1. PROLIA [Suspect]
     Indication: SYSTEMIC LUPUS ERYTHEMATOSUS
     Dosage: 60 MG, Q6MO
     Route: 065
     Dates: start: 20120828
  2. PROLIA [Suspect]
     Indication: RENAL FAILURE
  3. CALCIUM [Concomitant]
     Indication: BLOOD CALCIUM DECREASED
  4. CORTICOSTEROIDS [Concomitant]
     Route: 065

REACTIONS (2)
  - Hip fracture [Recovering/Resolving]
  - Blood calcium decreased [Recovered/Resolved]
